FAERS Safety Report 5412620-6 (Version None)
Quarter: 2007Q3

REPORT INFORMATION
  Report Type: 
  Country: None (occurrence: None)
  Receive Date: 20070809
  Receipt Date: 20070726
  Transmission Date: 20080115
  Serious: Yes (Death, Other)
  Sender: FDA-Public Use
  Company Number: 159272ISR

PATIENT
  Age: 74 Year
  Sex: Female

DRUGS (1)
  1. SIMVASTATIN [Suspect]
     Indication: MYOCARDIAL INFARCTION
     Dosage: 40 MG (40 MG, 1 IN 1 D)
     Route: 048
     Dates: start: 20060501

REACTIONS (3)
  - MULTI-ORGAN FAILURE [None]
  - PANCREATIC NECROSIS [None]
  - PANCREATITIS [None]
